FAERS Safety Report 4518350-7 (Version None)
Quarter: 2004Q4

REPORT INFORMATION
  Report Type: 
  Country: None (occurrence: None)
  Receive Date: 20041202
  Receipt Date: 20041120
  Transmission Date: 20050328
  Serious: Yes (Disabling, Other)
  Sender: FDA-Public Use
  Company Number: 2004079393

PATIENT
  Sex: Female

DRUGS (7)
  1. LIPITOR [Suspect]
     Indication: DYSLIPIDAEMIA
     Dosage: 20 MG (20 MG, 1 IN 1 D), ORAL
     Route: 048
     Dates: start: 20000101
  2. LOTREL [Concomitant]
  3. CONJUGATED ESTROGENS [Concomitant]
  4. HYDROCHLOROTHIAZIDE [Concomitant]
  5. QUININE SULFATE (QUININE SULFATE) [Concomitant]
  6. PIROXICAM [Concomitant]
  7. RABEPRAZOLE SODIUM [Concomitant]

REACTIONS (17)
  - ACTIVATED PARTIAL THROMBOPLASTIN TIME PROLONGED [None]
  - ANTIPHOSPHOLIPID ANTIBODIES [None]
  - BACK INJURY [None]
  - BACK PAIN [None]
  - DRUG INEFFECTIVE [None]
  - DYSSTASIA [None]
  - ELECTROCARDIOGRAM ABNORMAL [None]
  - EXOSTOSIS [None]
  - GAIT DISTURBANCE [None]
  - INTERVERTEBRAL DISC SPACE NARROWING [None]
  - LUMBAR RADICULOPATHY [None]
  - MOBILITY DECREASED [None]
  - NERVE ROOT COMPRESSION [None]
  - PAIN IN EXTREMITY [None]
  - SCOLIOSIS [None]
  - SPINAL COLUMN STENOSIS [None]
  - SPINAL OSTEOARTHRITIS [None]
